FAERS Safety Report 9265424 (Version 1)
Quarter: 2013Q2

REPORT INFORMATION
  Report Type: Spontaneous
  Country: US (occurrence: US)
  Receive Date: 20130501
  Receipt Date: 20130501
  Transmission Date: 20140414
  Serious: Yes (Congenital Anomaly)
  Sender: FDA-Public Use
  Company Number: US-FRI-1000044729

PATIENT
  Age: 0 Day
  Sex: Female

DRUGS (1)
  1. CELEXA [Suspect]
     Route: 064

REACTIONS (1)
  - Congenital aortic stenosis [Unknown]
